FAERS Safety Report 4664755-3 (Version None)
Quarter: 2005Q2

REPORT INFORMATION
  Report Type: 
  Country: None (occurrence: None)
  Receive Date: 20050516
  Receipt Date: 20050428
  Transmission Date: 20051028
  Serious: No
  Sender: FDA-Public Use
  Company Number: 11059

PATIENT
  Age: 8 Year
  Sex: Male

DRUGS (6)
  1. METHOTREXATE [Suspect]
     Indication: JUVENILE ARTHRITIS
     Dosage: 15 MG WEEKLY SC
     Route: 058
     Dates: start: 19990701
  2. DICLOFENAC SODIUM [Concomitant]
  3. FOLIC ACID [Concomitant]
  4. OMEPRAZOLE [Concomitant]
  5. ONDANSETRON [Concomitant]
  6. PREDNISOLONE [Concomitant]

REACTIONS (1)
  - MICROCYTIC ANAEMIA [None]
